FAERS Safety Report 13911572 (Version 1)
Quarter: 2017Q3

REPORT INFORMATION
  Report Type: Spontaneous
  Country: US (occurrence: US)
  Receive Date: 20170828
  Receipt Date: 20170828
  Transmission Date: 20171127
  Serious: No
  Sender: FDA-Public Use
  Company Number: US-ROCHE-1141569

PATIENT
  Sex: Female
  Weight: 46 kg

DRUGS (2)
  1. NUTROPIN AQ [Suspect]
     Active Substance: SOMATROPIN
     Indication: GONADAL DYSGENESIS
     Route: 058
     Dates: start: 200107
  2. NUTROPIN DEPOT [Suspect]
     Active Substance: SOMATROPIN\WATER
     Indication: GONADAL DYSGENESIS
     Route: 065

REACTIONS (1)
  - Headache [Unknown]
